FAERS Safety Report 7602728-9 (Version None)
Quarter: 2011Q3

REPORT INFORMATION
  Report Type: 
  Country: None (occurrence: None)
  Receive Date: 20110711
  Receipt Date: 20110711
  Transmission Date: 20111222
  Serious: Yes (Hospitalization)
  Sender: FDA-Public Use
  Company Number: None

PATIENT
  Age: 68 Year
  Sex: Female
  Weight: 78 kg

DRUGS (1)
  1. PRADAXA [Suspect]
     Indication: ATRIAL FIBRILLATION
     Dosage: 150MG BID PO
     Route: 048

REACTIONS (7)
  - PALPITATIONS [None]
  - HAEMOGLOBIN DECREASED [None]
  - DIZZINESS [None]
  - MALAISE [None]
  - FATIGUE [None]
  - OCCULT BLOOD POSITIVE [None]
  - DYSPNOEA [None]
